FAERS Safety Report 22047339 (Version 1)
Quarter: 2023Q1

REPORT INFORMATION
  Report Type: Spontaneous
  Country: US (occurrence: US)
  Receive Date: 20230301
  Receipt Date: 20230301
  Transmission Date: 20230417
  Serious: Yes (Hospitalization, Other)
  Sender: FDA-Public Use
  Company Number: US-BRISTOL-MYERS SQUIBB COMPANY-2023-029005

PATIENT
  Age: 66 Year
  Sex: Male

DRUGS (1)
  1. IPILIMUMAB [Suspect]
     Active Substance: IPILIMUMAB
     Indication: Pancreatic carcinoma

REACTIONS (3)
  - Immune-mediated lung disease [Recovering/Resolving]
  - Immune-mediated hepatic disorder [Unknown]
  - Off label use [Unknown]
